FAERS Safety Report 9586408 (Version 2)
Quarter: 2013Q4

REPORT INFORMATION
  Report Type: Spontaneous
  Country: US (occurrence: US)
  Receive Date: 20131003
  Receipt Date: 20131108
  Transmission Date: 20140711
  Serious: Yes (Other)
  Sender: FDA-Public Use
  Company Number: US-TEVA-435516USA

PATIENT
  Age: 51 Year
  Sex: Female

DRUGS (1)
  1. FEXOFENADINE [Suspect]
     Indication: SEASONAL ALLERGY
     Route: 048
     Dates: start: 20130923, end: 20130925

REACTIONS (3)
  - Loss of consciousness [Recovered/Resolved]
  - Vertigo [Recovered/Resolved]
  - Dyspnoea [Recovered/Resolved]
